FAERS Safety Report 5047445-7 (Version None)
Quarter: 2006Q3

REPORT INFORMATION
  Report Type: 
  Country: None (occurrence: None)
  Receive Date: 20060703
  Receipt Date: 20060620
  Transmission Date: 20061208
  Serious: Yes (Hospitalization, Other)
  Sender: FDA-Public Use
  Company Number: 2006074433

PATIENT
  Age: 80 Year
  Sex: Female

DRUGS (3)
  1. NEURONTIN [Suspect]
     Indication: ILL-DEFINED DISORDER
     Dosage: 300 MG (300 MG, 1 IN 1 D), ORAL
     Route: 048
     Dates: start: 20060411, end: 20060411
  2. KETOPROFEN [Suspect]
     Indication: ILL-DEFINED DISORDER
     Dosage: 150 MG (1 IN 1 D), ORAL
     Route: 048
     Dates: start: 20060411, end: 20060411
  3. MORPHINE [Suspect]
     Indication: BONE PAIN
     Dosage: 60 MCG

REACTIONS (4)
  - COMA [None]
  - DISORIENTATION [None]
  - HAEMORRHAGE [None]
  - INFLAMMATION [None]
